FAERS Safety Report 13232076 (Version 1)
Quarter: 2017Q1

REPORT INFORMATION
  Report Type: Spontaneous
  Country: US (occurrence: US)
  Receive Date: 20170214
  Receipt Date: 20170214
  Transmission Date: 20170428
  Serious: No
  Sender: FDA-Public Use
  Company Number: US-CIPLA LTD.-2016US07096

PATIENT

DRUGS (3)
  1. LYRICA [Suspect]
     Active Substance: PREGABALIN
     Indication: PAIN IN EXTREMITY
     Dosage: 75 MG, ONE IN THE MORNING AND NIGHT
     Route: 065
     Dates: start: 201512
  2. GABAPENTIN. [Suspect]
     Active Substance: GABAPENTIN
     Indication: PAIN IN EXTREMITY
     Dosage: 300 MG, SINGLE
     Route: 065
     Dates: start: 20160123, end: 20160123
  3. WELLBUTRIN [Concomitant]
     Active Substance: BUPROPION HYDROCHLORIDE
     Indication: PANIC ATTACK
     Dosage: 150 MG, UNK
     Route: 065

REACTIONS (9)
  - Insomnia [Unknown]
  - Ear pain [Recovering/Resolving]
  - Feeling abnormal [Recovered/Resolved]
  - Oropharyngeal pain [Recovered/Resolved]
  - Somnolence [Not Recovered/Not Resolved]
  - Off label use [Not Recovered/Not Resolved]
  - Irritability [Recovered/Resolved]
  - Dry mouth [Recovered/Resolved]
  - Treatment noncompliance [Unknown]

NARRATIVE: CASE EVENT DATE: 201512
